FAERS Safety Report 7817202-4 (Version None)
Quarter: 2011Q4

REPORT INFORMATION
  Report Type: 
  Country: None (occurrence: None)
  Receive Date: 20111017
  Receipt Date: 20111017
  Transmission Date: 20120403
  Serious: Yes (Other)
  Sender: FDA-Public Use
  Company Number: None

PATIENT
  Age: 55 Year
  Sex: Female
  Weight: 68.038 kg

DRUGS (1)
  1. APLENZIN [Suspect]
     Dosage: ONE TABLET
     Route: 048

REACTIONS (3)
  - URTICARIA [None]
  - RASH [None]
  - PHOTOSENSITIVITY REACTION [None]
